FAERS Safety Report 9531782 (Version 1)
Quarter: 2013Q3

REPORT INFORMATION
  Report Type: Spontaneous
  Country: US (occurrence: US)
  Receive Date: 20130918
  Receipt Date: 20130918
  Transmission Date: 20140515
  Serious: No
  Sender: FDA-Public Use
  Company Number: US-PFIZER INC-2013262881

PATIENT
  Age: 39 Year
  Sex: Male
  Weight: 90.7 kg

DRUGS (4)
  1. SOMAVERT [Suspect]
     Indication: ACROMEGALY
     Dosage: 10 MG, 1X/DAY
     Route: 058
  2. AMLODIPINE [Concomitant]
     Dosage: 5 MG, UNK
  3. SYNTHROID [Concomitant]
     Dosage: 75 UG, UNK
  4. BENAZEPRIL [Concomitant]
     Dosage: 5 MG, UNK

REACTIONS (1)
  - Nausea [Unknown]
